FAERS Safety Report 18246433 (Version 2)
Quarter: 2021Q2

REPORT INFORMATION
  Report Type: Spontaneous
  Country: US (occurrence: US)
  Receive Date: 20200909
  Receipt Date: 20210401
  Transmission Date: 20210717
  Serious: Yes (Other)
  Sender: FDA-Public Use
  Company Number: US-ASTRAZENECA-2020SF11570

PATIENT
  Age: 661 Month
  Sex: Male
  Weight: 97.5 kg

DRUGS (40)
  1. LISINOPRIL. [Concomitant]
     Active Substance: LISINOPRIL
     Indication: HYPERTENSION
     Dates: start: 20160511, end: 20161022
  2. CIPROFLOXACIN. [Concomitant]
     Active Substance: CIPROFLOXACIN
     Indication: INFECTION
     Dates: start: 20120709, end: 20140321
  3. PRILOSEC [Suspect]
     Active Substance: OMEPRAZOLE MAGNESIUM
     Indication: GASTROOESOPHAGEAL REFLUX DISEASE
     Route: 048
     Dates: start: 1998, end: 2017
  4. LYRICA [Concomitant]
     Active Substance: PREGABALIN
  5. METHADONE [Concomitant]
     Active Substance: METHADONE HYDROCHLORIDE
  6. HYDROCODONE?ACETAMINOPHEN [Concomitant]
     Active Substance: ACETAMINOPHEN\HYDROCODONE
  7. NEXIUM [Suspect]
     Active Substance: ESOMEPRAZOLE MAGNESIUM
     Indication: GASTROOESOPHAGEAL REFLUX DISEASE
     Route: 048
     Dates: start: 200201, end: 201812
  8. AMOXICILLIN. [Concomitant]
     Active Substance: AMOXICILLIN
     Indication: INFECTION
     Dates: start: 20120607, end: 20180401
  9. FLONASE [Concomitant]
     Active Substance: FLUTICASONE PROPIONATE
  10. SYMBICORT [Concomitant]
     Active Substance: BUDESONIDE\FORMOTEROL FUMARATE DIHYDRATE
  11. CHANTIX [Concomitant]
     Active Substance: VARENICLINE TARTRATE
  12. MAXALT [Concomitant]
     Active Substance: RIZATRIPTAN BENZOATE
  13. DEMEROL [Concomitant]
     Active Substance: MEPERIDINE HYDROCHLORIDE
  14. PRILOSEC [Suspect]
     Active Substance: OMEPRAZOLE MAGNESIUM
     Indication: GASTROOESOPHAGEAL REFLUX DISEASE
     Route: 048
     Dates: start: 200201, end: 201812
  15. TYLENOL [Concomitant]
     Active Substance: ACETAMINOPHEN
     Indication: MIGRAINE
  16. ZANTAC [Concomitant]
     Active Substance: RANITIDINE HYDROCHLORIDE
     Dates: start: 2000
  17. ESZOPICLONE. [Concomitant]
     Active Substance: ESZOPICLONE
  18. NEXIUM [Suspect]
     Active Substance: ESOMEPRAZOLE MAGNESIUM
     Indication: GASTROOESOPHAGEAL REFLUX DISEASE
     Route: 048
     Dates: start: 2001, end: 2017
  19. PRILOSEC [Suspect]
     Active Substance: OMEPRAZOLE MAGNESIUM
     Indication: GASTROOESOPHAGEAL REFLUX DISEASE
     Dosage: GENERIC
     Route: 065
     Dates: start: 2014
  20. PROTONIX [Suspect]
     Active Substance: PANTOPRAZOLE SODIUM
     Indication: GASTROOESOPHAGEAL REFLUX DISEASE
     Dosage: GENERIC
     Route: 065
     Dates: start: 2011
  21. AMBIEN [Concomitant]
     Active Substance: ZOLPIDEM TARTRATE
  22. MIRAPEX [Concomitant]
     Active Substance: PRAMIPEXOLE DIHYDROCHLORIDE
  23. TAMSULOSIN [Concomitant]
     Active Substance: TAMSULOSIN
  24. GABITRIL [Concomitant]
     Active Substance: TIAGABINE HYDROCHLORIDE
  25. VERSED [Concomitant]
     Active Substance: MIDAZOLAM HYDROCHLORIDE
  26. MELOXICAM. [Concomitant]
     Active Substance: MELOXICAM
     Indication: INFLAMMATION
     Dates: start: 20170630, end: 20170828
  27. CIALIS [Concomitant]
     Active Substance: TADALAFIL
  28. DULOXETINE. [Concomitant]
     Active Substance: DULOXETINE
  29. LORATADINE. [Concomitant]
     Active Substance: LORATADINE
  30. CEFPODOXIME [Concomitant]
     Active Substance: CEFPODOXIME
  31. MUPIROCIN. [Concomitant]
     Active Substance: MUPIROCIN
  32. HYDROCODONE [Concomitant]
     Active Substance: HYDROCODONE
  33. PEPCID [Concomitant]
     Active Substance: FAMOTIDINE
     Dates: start: 2000
  34. PLAVIX [Concomitant]
     Active Substance: CLOPIDOGREL BISULFATE
  35. PROTONIX [Suspect]
     Active Substance: PANTOPRAZOLE SODIUM
     Indication: GASTROOESOPHAGEAL REFLUX DISEASE
     Dosage: DELAYED RELEASE CAPSULE
     Route: 065
     Dates: start: 20181115
  36. CELECOXIB. [Concomitant]
     Active Substance: CELECOXIB
     Indication: INFLAMMATION
     Dates: start: 20141217, end: 20150116
  37. PRAVASTATIN. [Concomitant]
     Active Substance: PRAVASTATIN
     Indication: HYPERLIPIDAEMIA
     Dates: start: 20110323, end: 20161220
  38. TUMS [Concomitant]
     Active Substance: CALCIUM CARBONATE
  39. LEVORPHANOL TARTRATE. [Concomitant]
     Active Substance: LEVORPHANOL TARTRATE
  40. TOPIRAMATE. [Concomitant]
     Active Substance: TOPIRAMATE

REACTIONS (1)
  - Chronic kidney disease [Not Recovered/Not Resolved]

NARRATIVE: CASE EVENT DATE: 201709
